FAERS Safety Report 8192684-X (Version None)
Quarter: 2012Q1

REPORT INFORMATION
  Report Type: 
  Country: None (occurrence: None)
  Receive Date: 20120308
  Receipt Date: 20120228
  Transmission Date: 20120608
  Serious: Yes (Life-Threatening, Hospitalization)
  Sender: FDA-Public Use
  Company Number: FR-US-EMD SERONO, INC.-7115538

PATIENT
  Age: 38 Year
  Sex: Female

DRUGS (3)
  1. PUREGON [Suspect]
     Indication: PRODUCT USED FOR UNKNOWN INDICATION
     Route: 058
     Dates: start: 20100916, end: 20100926
  2. GONADOTROPHINE CHORIONIQUE ENDO [Suspect]
     Indication: PRODUCT USED FOR UNKNOWN INDICATION
     Route: 030
     Dates: start: 20100927, end: 20100927
  3. CETROTIDE [Suspect]
     Indication: PRODUCT USED FOR UNKNOWN INDICATION
     Route: 058
     Dates: start: 20100916, end: 20100927

REACTIONS (3)
  - OVARIAN TORSION [None]
  - OVARIAN HYPERSTIMULATION SYNDROME [None]
  - GASTROINTESTINAL PERFORATION [None]
